FAERS Safety Report 6202543-7 (Version None)
Quarter: 2009Q2

REPORT INFORMATION
  Report Type: 
  Country: None (occurrence: None)
  Receive Date: 20090520
  Receipt Date: 20090514
  Transmission Date: 20091009
  Serious: Yes (Death)
  Sender: FDA-Public Use
  Company Number: FABR-1000808

PATIENT
  Age: 60 Year
  Sex: Male

DRUGS (1)
  1. FABRAZYME [Suspect]
     Indication: FABRY'S DISEASE
     Dosage: 1 MG/KG, INTRAVENOUS
     Route: 042
     Dates: start: 20090427, end: 20090501

REACTIONS (3)
  - MULTI-ORGAN DISORDER [None]
  - PNEUMONIA [None]
  - SEPTIC SHOCK [None]
